FAERS Safety Report 7691269-9 (Version None)
Quarter: 2011Q3

REPORT INFORMATION
  Report Type: 
  Country: None (occurrence: None)
  Receive Date: 20110815
  Receipt Date: 20110808
  Transmission Date: 20111222
  Serious: Yes (Death)
  Sender: FDA-Public Use
  Company Number: 2011029480

PATIENT

DRUGS (1)
  1. STREPTASE [Suspect]
     Indication: CARDIAC VALVE REPLACEMENT COMPLICATION
     Dosage: 250000 IU TOTAL, 100000 IU QIH, INTRAVENOUS
     Route: 042

REACTIONS (2)
  - CEREBROVASCULAR ACCIDENT [None]
  - NO THERAPEUTIC RESPONSE [None]
